FAERS Safety Report 8358459-3 (Version None)
Quarter: 2012Q2

REPORT INFORMATION
  Report Type: 
  Country: None (occurrence: None)
  Receive Date: 20120514
  Receipt Date: 20120511
  Transmission Date: 20120825
  Serious: Yes (Life-Threatening, Hospitalization, Other)
  Sender: FDA-Public Use
  Company Number: PHHY2012ES039750

PATIENT
  Age: 74 Year
  Sex: Female

DRUGS (6)
  1. TORSEMIDE [Concomitant]
     Indication: CARDIAC FAILURE
     Dosage: 5 MG, UNK
     Route: 048
  2. SINTROM [Interacting]
     Indication: PROPHYLAXIS
     Dosage: 4 MG, UNK
     Dates: end: 20090728
  3. DIGOXIN [Concomitant]
     Indication: ATRIAL FIBRILLATION
     Dosage: 1.5 MG, UNK
     Route: 048
  4. METFORMIN HCL [Concomitant]
     Indication: DIABETES MELLITUS
     Dosage: 1.7 MG, UNK
     Route: 048
     Dates: start: 20081101, end: 20090729
  5. SIMVASTATIN [Suspect]
     Indication: HYPERLIPIDAEMIA
     Dosage: 20 MG, UNK
     Route: 048
  6. IBUPROFEN [Interacting]
     Indication: PAIN
     Dosage: 1.8 MG, UNK
     Route: 048
     Dates: start: 20090723, end: 20090728

REACTIONS (8)
  - ACTIVATED PARTIAL THROMBOPLASTIN TIME SHORTENED [None]
  - MELAENA [None]
  - BLOOD PRESSURE DIASTOLIC DECREASED [None]
  - LOWER GASTROINTESTINAL HAEMORRHAGE [None]
  - PROTHROMBIN TIME SHORTENED [None]
  - UPPER GASTROINTESTINAL HAEMORRHAGE [None]
  - HAEMATOCRIT DECREASED [None]
  - DRUG INTERACTION [None]
